FAERS Safety Report 6603645-3 (Version None)
Quarter: 2010Q1

REPORT INFORMATION
  Report Type: 
  Country: None (occurrence: None)
  Receive Date: 20100226
  Receipt Date: 20100119
  Transmission Date: 20100710
  Serious: No
  Sender: FDA-Public Use
  Company Number: A0837906A

PATIENT
  Sex: Female

DRUGS (2)
  1. VALTREX [Suspect]
     Indication: DRUG USE FOR UNKNOWN INDICATION
     Dosage: 500MG TWICE PER DAY
     Route: 048
  2. ACYCLOVIR [Suspect]
     Indication: DRUG USE FOR UNKNOWN INDICATION
     Route: 065

REACTIONS (11)
  - DIZZINESS [None]
  - DRUG INEFFECTIVE [None]
  - DYSGEUSIA [None]
  - IMPAIRED DRIVING ABILITY [None]
  - MALAISE [None]
  - MENTAL IMPAIRMENT [None]
  - ORAL HERPES [None]
  - PAIN [None]
  - PERFORMANCE STATUS DECREASED [None]
  - RASH [None]
  - TREATMENT NONCOMPLIANCE [None]
